FAERS Safety Report 5289764-5 (Version None)
Quarter: 2007Q2

REPORT INFORMATION
  Report Type: 
  Country: None (occurrence: None)
  Receive Date: 20070406
  Receipt Date: 20070322
  Transmission Date: 20071010
  Serious: Yes (Life-Threatening, Other)
  Sender: FDA-Public Use
  Company Number: CA-JNJFOC-20030803551

PATIENT
  Sex: Female

DRUGS (9)
  1. REMICADE [Suspect]
     Indication: RHEUMATOID ARTHRITIS
     Dosage: ADMINISTERED EVERY 6-8 WEEKS
     Route: 042
  2. PREDNISONE TAB [Concomitant]
     Dosage: 15-20 MG DAILY
  3. NEXIUM [Concomitant]
  4. MOTILIUM [Concomitant]
  5. CELEBREX [Concomitant]
  6. LIPITOR [Concomitant]
  7. LEVOTHYROXINE SODIUM [Concomitant]
  8. PROCHLORPERAZINE [Concomitant]
  9. DURAGESIC-100 [Concomitant]

REACTIONS (1)
  - LYMPH NODE TUBERCULOSIS [None]
